FAERS Safety Report 5558789-4 (Version None)
Quarter: 2007Q4

REPORT INFORMATION
  Report Type: 
  Country: None (occurrence: None)
  Receive Date: 20071214
  Receipt Date: 20071204
  Transmission Date: 20080405
  Serious: Yes (Other)
  Sender: FDA-Public Use
  Company Number: US-PFIZER INC-2007103021

PATIENT
  Sex: Male
  Weight: 102.1 kg

DRUGS (4)
  1. CHANTIX [Suspect]
     Indication: SMOKING CESSATION THERAPY
     Dates: start: 20071101, end: 20071101
  2. AVAPRO [Concomitant]
  3. TOPROL-XL [Concomitant]
  4. CARVEDILOL [Concomitant]

REACTIONS (6)
  - AGEUSIA [None]
  - ANOSMIA [None]
  - DYSGEUSIA [None]
  - EUPHORIC MOOD [None]
  - MALAISE [None]
  - PAROSMIA [None]
